FAERS Safety Report 6503572-6 (Version None)
Quarter: 2009Q4

REPORT INFORMATION
  Report Type: 
  Country: None (occurrence: None)
  Receive Date: 20091217
  Receipt Date: 20091204
  Transmission Date: 20100525
  Serious: Yes (Hospitalization, Other)
  Sender: FDA-Public Use
  Company Number: US-ELI_LILLY_AND_COMPANY-US200908006112

PATIENT
  Sex: Female

DRUGS (9)
  1. CYMBALTA [Suspect]
     Indication: DEPRESSION
     Dosage: 120 MG, DAILY (1/D)
     Dates: start: 20080301, end: 20080101
  2. CYMBALTA [Suspect]
     Dosage: 1 D/F, UNK
     Dates: start: 20080101, end: 20081201
  3. GEODON [Concomitant]
  4. WELLBUTRIN [Concomitant]
  5. NEXIUM [Concomitant]
  6. LEVOTHYROXINE SODIUM [Concomitant]
     Indication: HYPOTHYROIDISM
  7. ADVAIR DISKUS 100/50 [Concomitant]
     Indication: ASTHMA
  8. SINGULAIR [Concomitant]
     Indication: ASTHMA
  9. ENABLEX                            /01760401/ [Concomitant]
     Indication: INCONTINENCE
     Dosage: 15 MG, UNK

REACTIONS (11)
  - ABNORMAL BEHAVIOUR [None]
  - ANGER [None]
  - ANXIETY [None]
  - DEPRESSED MOOD [None]
  - DRUG CLEARANCE DECREASED [None]
  - DRUG EFFECT INCREASED [None]
  - DRUG WITHDRAWAL SYNDROME [None]
  - HEPATIC FUNCTION ABNORMAL [None]
  - LOSS OF EMPLOYMENT [None]
  - PAIN IN EXTREMITY [None]
  - SUICIDAL IDEATION [None]
